FAERS Safety Report 15054936 (Version 1)
Quarter: 2018Q2

REPORT INFORMATION
  Report Type: Spontaneous
  Country: US (occurrence: US)
  Receive Date: 20180603
  Receipt Date: 20180603
  Transmission Date: 20180711
  Serious: Yes (Hospitalization)
  Sender: FDA-Public Use
  Company Number: None

PATIENT
  Age: 41 Year
  Sex: Male
  Weight: 235.1 kg

DRUGS (1)
  1. INSULIN [Suspect]
     Active Substance: INSULIN NOS
     Route: 058
     Dates: start: 20180101, end: 20180101

REACTIONS (4)
  - Rash maculo-papular [None]
  - Wheezing [None]
  - Anaphylactic reaction [None]
  - Rash erythematous [None]

NARRATIVE: CASE EVENT DATE: 20180101
